FAERS Safety Report 16982493 (Version 1)
Quarter: 2019Q4

REPORT INFORMATION
  Report Type: Spontaneous
  Country: JP (occurrence: JP)
  Receive Date: 20191101
  Receipt Date: 20191101
  Transmission Date: 20200122
  Serious: Yes (Death, Other)
  Sender: FDA-Public Use
  Company Number: NVSJ2019JP002067

PATIENT
  Age: 39 Year
  Sex: Male

DRUGS (2)
  1. IMATINIB TAB [Suspect]
     Active Substance: IMATINIB
     Indication: DERMATOFIBROSARCOMA PROTUBERANS
     Dosage: UNK
     Route: 065
  2. PAZOPANIB [Suspect]
     Active Substance: PAZOPANIB
     Indication: DERMATOFIBROSARCOMA PROTUBERANS
     Dosage: UNK
     Route: 065

REACTIONS (4)
  - Death [Fatal]
  - Metastases to bone [Unknown]
  - Dermatofibrosarcoma protuberans [Unknown]
  - Malignant neoplasm progression [Unknown]
